FAERS Safety Report 24434438 (Version 2)
Quarter: 2024Q4

REPORT INFORMATION
  Report Type: Report from Study
  Country: US (occurrence: US)
  Receive Date: 20241014
  Receipt Date: 20241220
  Transmission Date: 20250115
  Serious: Yes (Other)
  Sender: AMGEN
  Company Number: US-AMGEN-USASL2023221717

PATIENT
  Age: 44 Year
  Sex: Male

DRUGS (27)
  1. VECTIBIX [Suspect]
     Active Substance: PANITUMUMAB
     Indication: Product used for unknown indication
     Dosage: 100 MILLIGRAM
     Route: 042
  2. VECTIBIX [Suspect]
     Active Substance: PANITUMUMAB
     Dosage: 4.8 MILLIGRAM/KILOGRAM, 500 MG, DAY 1 CYCLE 48
     Route: 042
     Dates: start: 20240619
  3. VECTIBIX [Suspect]
     Active Substance: PANITUMUMAB
     Dosage: 4.8 MILLIGRAM/KILOGRAM,  500MG IN NSS 100 ML INFUSION ONCE) IVPB
     Route: 042
     Dates: start: 20240911, end: 20240911
  4. BENADRYL [Suspect]
     Active Substance: DIPHENHYDRAMINE HYDROCHLORIDE
     Indication: Hypersensitivity
     Dosage: 50 MILLIGRAM,( 50 MG INJ) ONCE PRN IV PUSH
     Route: 042
     Dates: start: 20240911, end: 20240911
  5. EPINEPHRINE [Suspect]
     Active Substance: EPINEPHRINE
     Indication: Anaphylactic reaction
     Dosage: 0.3 MILLIGRAM, (1MG/ML INJ0.3 MG) ONCE, IM
     Route: 030
     Dates: start: 20240911, end: 20240911
  6. ATIVAN [Suspect]
     Active Substance: LORAZEPAM
     Indication: Anxiety
     Dosage: 0.5 MILLIGRAM, (ONCE PRN) OR
     Route: 048
     Dates: start: 20240911, end: 20240911
  7. ATIVAN [Suspect]
     Active Substance: LORAZEPAM
     Indication: Nausea
  8. HYDROCORTISONE SODIUM SUCCINATE [Suspect]
     Active Substance: HYDROCORTISONE SODIUM SUCCINATE
     Indication: Hypersensitivity
     Dosage: 100 MILLIGRAM (ONCE PRN IV PUSH)
     Route: 042
     Dates: start: 20240911, end: 20240911
  9. DECADRON [Concomitant]
     Active Substance: DEXAMETHASONE
     Indication: Product used for unknown indication
     Dosage: 12 MILLIGRAM, DAY 1 CYCLE 48, CYCLE 49, CYCLE 50, CYCLE 51/ ONCE ORAL)
     Route: 048
     Dates: start: 20240619
  10. FLUOROURACIL [Concomitant]
     Active Substance: FLUOROURACIL
     Indication: Product used for unknown indication
     Dosage: 2400 MILLIGRAM/SQ. METER / 400 MILLIGRAM/SQ. METER5500, (ONCE) DAY 1 CYCLE 48, DAY 1 CYCLE 49, 5750
     Route: 042
     Dates: start: 20240619, end: 20240911
  11. LEUCOVORIN CALCIUM [Concomitant]
     Active Substance: LEUCOVORIN CALCIUM
     Indication: Product used for unknown indication
     Dosage: 400 MILLIGRAM/SQ. METER,  950 MG DAY 1 CYCLE 48, DAY 2 CYCLE 49, 950 MG DAY 3 CYCLE 50, DAY 4 CYCLE
     Route: 042
  12. ALOXI [Concomitant]
     Active Substance: PALONOSETRON HYDROCHLORIDE
     Indication: Product used for unknown indication
     Dosage: 0.25 MILLIGRAM, DAY 1 CYCLE 48, DAY 2 CYCLE 49, DAY 3 CYCLE 50, DAY 4 CYCLE 51 /ONCE IVPUSH
     Route: 042
  13. DEXTROSE [Concomitant]
     Active Substance: DEXTROSE MONOHYDRATE
     Indication: Product used for unknown indication
     Dosage: 5% IVPB 250 MG, DAY 1 CYCLE 48, CYCLE 49, CYCLE 50, CYCLE 51
  14. LYRICA [Concomitant]
     Active Substance: PREGABALIN
     Dosage: 75 MILLIGRAM, BID (1 CAP IN THE MORNING BY MOUTH AND 1 CAP BEFORE BED TIME)
     Route: 048
     Dates: start: 20240822
  15. CEPHALEXIN [Concomitant]
     Active Substance: CEPHALEXIN
     Dosage: 500 MILLIGRAM, TID (TAKE 1 CAP IN THE MORNING 1 CAP AT NOON AND 1 CAP BEFORE BEDTIME BY MOUTH)
     Route: 048
     Dates: start: 20240819, end: 20240826
  16. POTASSIUM CHLORIDE EXTENDED RELEASE [Concomitant]
     Active Substance: POTASSIUM CHLORIDE
     Dosage: UNK UNK, BID (UNK (TAKE 2 TAB IN THE MORNING BY MOUTH AND 2 TAB BEFORE BEDTIME)
     Route: 048
     Dates: start: 20240813
  17. DELTASONE [Concomitant]
     Active Substance: PREDNISONE
     Dosage: 10 MILLIGRAM (TAKE 4 TAB. DAILY BY MOUTH FOR 3 DAYS, THEN 3 TAB DAILY FOR 3 DAYS THEN 2 TAB DAILY FO
     Route: 048
     Dates: start: 20240804, end: 20240815
  18. DOXYCYCLINE HYCLATE [Concomitant]
     Active Substance: DOXYCYCLINE HYCLATE
     Dosage: 100 MILLIGRAM, BID (00 MILLIGRAM (TAKE 1 CAP BY MOUTH IN MORNING AND 1 CAP BEFORE BEDTIME)
     Route: 048
     Dates: start: 20240708
  19. BACTROBAN [Concomitant]
     Active Substance: MUPIROCIN CALCIUM
     Dosage: UNK UNK, QD (UNK APPLY TO FACE DAILY)
     Route: 061
     Dates: start: 20240625
  20. NORVASC [Concomitant]
     Active Substance: AMLODIPINE BESYLATE
     Dosage: 5 MILLIGRAM, QD ((TAKE 1 TAB BY MOUTH IN THE MORNING)
     Route: 048
     Dates: start: 20240603
  21. CLINDAMYCIN PHOSPHATE [Concomitant]
     Active Substance: CLINDAMYCIN PHOSPHATE
     Dosage: UNK UNK, QD (UNK (APPLY AFFECTED AREA OF FACE, ARM, CHEST, DAILY)
     Route: 061
     Dates: start: 20240510
  22. ARISTOCORT [Concomitant]
     Active Substance: TRIAMCINOLONE DIACETATE
     Dosage: UNK (APPLY TO FACE, ARM, CHEST 1- 2 TIMES DAILY)
     Route: 065
     Dates: start: 20240510
  23. ROZEREM [Concomitant]
     Active Substance: RAMELTEON
     Dosage: UNK (TAKE 1 TAB BY MOUTH AT BEDTIME)
     Route: 048
     Dates: start: 20240430, end: 20241003
  24. IMODIUM [Concomitant]
     Active Substance: LOPERAMIDE HYDROCHLORIDE
     Dosage: 2 MILLIGRAM, QID (1 CAP BY MOUTH 4 TIMES A DAY)
     Route: 048
     Dates: start: 20231227
  25. TACROLIMUS [Concomitant]
     Active Substance: TACROLIMUS
     Dosage: UNK UNK, BID (APPLY AROUND RASH TWICE A DAY)
     Route: 061
     Dates: start: 20231222
  26. HYDROCORTISONE [Concomitant]
     Active Substance: HYDROCORTISONE
     Dosage: 30 GRAM, BID (APPLY 2 TIMES  A DAY TOPICALLY AFFECTED AREA)
     Route: 061
     Dates: start: 20231010
  27. ZYRTEC [Concomitant]
     Active Substance: CETIRIZINE HYDROCHLORIDE
     Dosage: UNK UNK, QD (1 TAB IN THE MORNING BY MOUTH)
     Route: 048
     Dates: start: 20220622

REACTIONS (22)
  - Rectal haemorrhage [Unknown]
  - Hypokalaemia [Unknown]
  - Colon cancer [Unknown]
  - Colon cancer metastatic [Unknown]
  - Metastases to liver [Unknown]
  - Thrombocytopenia [Unknown]
  - Neuropathy peripheral [Unknown]
  - Cancer fatigue [Unknown]
  - Pulmonary mass [Unknown]
  - Anaemia of malignant disease [Unknown]
  - Anaphylactic reaction [Unknown]
  - Nausea [Unknown]
  - Vomiting [Unknown]
  - Hypomagnesaemia [Unknown]
  - Cough [Unknown]
  - Hypersensitivity [Unknown]
  - Upper-airway cough syndrome [Unknown]
  - Post-acute COVID-19 syndrome [Unknown]
  - Oedema [Unknown]
  - Blood pressure systolic increased [Unknown]
  - Blood pressure diastolic increased [Unknown]
  - Anxiety [Unknown]

NARRATIVE: CASE EVENT DATE: 20230101
